FAERS Safety Report 6644546-4 (Version None)
Quarter: 2010Q1

REPORT INFORMATION
  Report Type: 
  Country: None (occurrence: None)
  Receive Date: 20100319
  Receipt Date: 20100319
  Transmission Date: 20100710
  Serious: Yes (Other)
  Sender: FDA-Public Use
  Company Number: None

PATIENT
  Sex: Female
  Weight: 75 kg

DRUGS (1)
  1. SINGULAIR [Suspect]
     Indication: ASTHMA
     Dosage: 10 MG ONCE A DAY ORALLY
     Route: 048
     Dates: start: 20070601, end: 20100201

REACTIONS (7)
  - ARTHRALGIA [None]
  - CONCUSSION [None]
  - CONTUSION [None]
  - DYSPNOEA [None]
  - FEAR [None]
  - MUSCULAR WEAKNESS [None]
  - SYNCOPE [None]
